FAERS Safety Report 25025043 (Version 1)
Quarter: 2025Q1

REPORT INFORMATION
  Report Type: Spontaneous
  Country: US (occurrence: None)
  Receive Date: 20250228
  Receipt Date: 20250228
  Transmission Date: 20250409
  Serious: Yes (Death, Life-Threatening)
  Sender: FDA-CTU
  Company Number: None

PATIENT
  Age: 30 Year
  Sex: Female

DRUGS (1)
  1. CEFTRIAXONE [Suspect]
     Active Substance: CEFTRIAXONE
     Dates: start: 20240229

REACTIONS (10)
  - Cough [None]
  - Erythema [None]
  - Feeling hot [None]
  - Vomiting [None]
  - Seizure [None]
  - Cyanosis [None]
  - Hypoxia [None]
  - Nodal rhythm [None]
  - Ventricular fibrillation [None]
  - Gastrointestinal haemorrhage [None]

NARRATIVE: CASE EVENT DATE: 20240229
